FAERS Safety Report 5336337-1 (Version None)
Quarter: 2007Q2

REPORT INFORMATION
  Report Type: 
  Country: None (occurrence: None)
  Receive Date: 20070523
  Receipt Date: 20070508
  Transmission Date: 20071010
  Serious: Yes (Other)
  Sender: FDA-Public Use
  Company Number: PAR_01552_2007

PATIENT
  Sex: Female

DRUGS (2)
  1. HYDROXYUREA [Suspect]
     Dates: start: 20070201
  2. NAMENDA [Suspect]
     Dates: start: 20070201

REACTIONS (1)
  - BLOOD POTASSIUM DECREASED [None]
